FAERS Safety Report 4589453-6 (Version None)
Quarter: 2005Q1

REPORT INFORMATION
  Report Type: 
  Country: None (occurrence: None)
  Receive Date: 20050216
  Receipt Date: 20041022
  Transmission Date: 20050727
  Serious: Yes (Hospitalization)
  Sender: FDA-Public Use
  Company Number: F01200403342

PATIENT
  Age: 79 Year
  Sex: Female

DRUGS (4)
  1. OXALIPLATIN [Suspect]
     Indication: COLORECTAL CANCER METASTATIC
     Dosage: 108 MG Q2W
     Route: 042
     Dates: start: 20040304, end: 20040304
  2. FLUOROURACIL [Suspect]
     Dosage: 3600 MG (2250 MG/M2 IN 48  HOURS, WEEKLY)
     Route: 042
     Dates: start: 20040311, end: 20040311
  3. OMEPRAZOLE [Concomitant]
  4. AKINETON [Concomitant]

REACTIONS (3)
  - CONFUSIONAL STATE [None]
  - DIARRHOEA [None]
  - PYREXIA [None]
